FAERS Safety Report 4681454-2 (Version None)
Quarter: 2005Q2

REPORT INFORMATION
  Report Type: 
  Country: None (occurrence: None)
  Receive Date: 20050601
  Receipt Date: 20050516
  Transmission Date: 20051028
  Serious: Yes (Hospitalization)
  Sender: FDA-Public Use
  Company Number: USA050598104

PATIENT
  Age: 92 Year
  Sex: Female
  Weight: 41 kg

DRUGS (6)
  1. FORTEO [Suspect]
     Indication: OSTEOPOROSIS
  2. NADOLOL [Concomitant]
  3. UNSPECIFIED WATER PILL [Concomitant]
  4. PLAQUENIL [Concomitant]
  5. CALCIUM GLUCONATE [Concomitant]
  6. MULTI-VITAMIN [Concomitant]

REACTIONS (3)
  - BLOOD PRESSURE DECREASED [None]
  - DELUSION [None]
  - DRUG DOSE OMISSION [None]
